FAERS Safety Report 17908003 (Version 2)
Quarter: 2020Q2

REPORT INFORMATION
  Report Type: Report from Study
  Country: US (occurrence: US)
  Receive Date: 20200617
  Receipt Date: 20200622
  Transmission Date: 20200714
  Serious: Yes (Other)
  Sender: FDA-Public Use
  Company Number: US-ROCHE-2620892

PATIENT
  Age: 66 Year
  Sex: Female
  Weight: 99.88 kg

DRUGS (2)
  1. OCREVUS [Suspect]
     Active Substance: OCRELIZUMAB
     Dosage: ONGOING:YES
     Route: 065
     Dates: start: 20171221
  2. OCREVUS [Suspect]
     Active Substance: OCRELIZUMAB
     Indication: RELAPSING-REMITTING MULTIPLE SCLEROSIS
     Dosage: ONGOING: YES
     Route: 042
     Dates: start: 201606

REACTIONS (6)
  - Drug ineffective [Unknown]
  - Myalgia [Unknown]
  - Feeling abnormal [Unknown]
  - Sinusitis [Recovered/Resolved]
  - Musculoskeletal pain [Unknown]
  - Fatigue [Unknown]

NARRATIVE: CASE EVENT DATE: 20200602
